FAERS Safety Report 16990854 (Version 2)
Quarter: 2019Q4

REPORT INFORMATION
  Report Type: Spontaneous
  Country: US (occurrence: US)
  Receive Date: 20191104
  Receipt Date: 20191203
  Transmission Date: 20200122
  Serious: No
  Sender: FDA-Public Use
  Company Number: US-SA-2019SA303478

PATIENT
  Age: 54 Year
  Sex: Female
  Weight: 77.1 kg

DRUGS (15)
  1. ADEMPAS [Concomitant]
     Active Substance: RIOCIGUAT
  2. VITAMIN B12 [VITAMIN B12 NOS] [Concomitant]
     Active Substance: CYANOCOBALAMIN
  3. ADVAIR HFA [Concomitant]
     Active Substance: FLUTICASONE PROPIONATE\SALMETEROL XINAFOATE
  4. VENTOLIN HFA [Concomitant]
     Active Substance: ALBUTEROL SULFATE
  5. OXYGEN. [Concomitant]
     Active Substance: OXYGEN
  6. PEPCID COMPLETE [Concomitant]
     Active Substance: CALCIUM CARBONATE\FAMOTIDINE\MAGNESIUM HYDROXIDE
  7. FUROSEMIDE. [Concomitant]
     Active Substance: FUROSEMIDE
  8. DUPIXENT [Suspect]
     Active Substance: DUPILUMAB
     Indication: CONNECTIVE TISSUE DISORDER
     Dosage: 300 MG, QOW
     Route: 058
  9. METHOTREXATE. [Concomitant]
     Active Substance: METHOTREXATE
  10. ALEVE [Concomitant]
     Active Substance: NAPROXEN SODIUM
  11. AMITRIPTYLINE HCL [Concomitant]
     Active Substance: AMITRIPTYLINE
  12. VENTAVIS [Suspect]
     Active Substance: ILOPROST
  13. OPSUMIT [Concomitant]
     Active Substance: MACITENTAN
  14. RELPAX [Concomitant]
     Active Substance: ELETRIPTAN HYDROBROMIDE
  15. CELLCEPT [Concomitant]
     Active Substance: MYCOPHENOLATE MOFETIL\MYCOPHENOLATE MOFETIL HYDROCHLORIDE

REACTIONS (5)
  - Throat irritation [Unknown]
  - Product use in unapproved indication [Unknown]
  - Myalgia [Unknown]
  - Muscle strain [Unknown]
  - Dyspnoea [Unknown]
